FAERS Safety Report 15992852 (Version 1)
Quarter: 2019Q1

REPORT INFORMATION
  Report Type: Spontaneous
  Country: US (occurrence: US)
  Receive Date: 20190221
  Receipt Date: 20190221
  Transmission Date: 20190418
  Serious: No
  Sender: FDA-Public Use
  Company Number: US-AMGEN-USASP2019026900

PATIENT
  Age: 89 Year
  Sex: Female
  Weight: 66.67 kg

DRUGS (1)
  1. PROCRIT [Suspect]
     Active Substance: ERYTHROPOIETIN
     Indication: HAEMOGLOBIN ABNORMAL
     Dosage: 20000 UNIT, UNK
     Route: 058

REACTIONS (3)
  - Product storage error [Unknown]
  - Product dose omission [Unknown]
  - Haemoglobin decreased [Unknown]

NARRATIVE: CASE EVENT DATE: 201902
